FAERS Safety Report 5530859-6 (Version None)
Quarter: 2007Q4

REPORT INFORMATION
  Report Type: 
  Country: None (occurrence: None)
  Receive Date: 20071130
  Receipt Date: 20071119
  Transmission Date: 20080405
  Serious: Yes (Other)
  Sender: FDA-Public Use
  Company Number: US-PFIZER INC-2007098323

PATIENT
  Sex: Male

DRUGS (2)
  1. BEXTRA [Suspect]
     Indication: HEADACHE
  2. ERYTHROMYCIN [Suspect]
     Dates: start: 20030201

REACTIONS (5)
  - BODY TINEA [None]
  - EPSTEIN-BARR VIRUS INFECTION [None]
  - LICHEN PLANUS [None]
  - STEVENS-JOHNSON SYNDROME [None]
  - STOMATITIS [None]
